FAERS Safety Report 10028775 (Version 1)
Quarter: 2014Q1

REPORT INFORMATION
  Report Type: Spontaneous
  Country: SE (occurrence: SE)
  Receive Date: 20140321
  Receipt Date: 20140321
  Transmission Date: 20141002
  Serious: Yes (Hospitalization)
  Sender: FDA-Public Use
  Company Number: SE-BAYER-2014-039398

PATIENT
  Age: 65 Year
  Sex: Male

DRUGS (2)
  1. ACETYLSALICYLIC ACID (} 100 MG) [Suspect]
     Dosage: 160 MG, QD
  2. WARFARIN [Concomitant]
     Dosage: UNK

REACTIONS (2)
  - Thrombosis in device [Recovered/Resolved]
  - Drug resistance [None]
